FAERS Safety Report 10259114 (Version 2)
Quarter: 2014Q2

REPORT INFORMATION
  Report Type: Spontaneous
  Country: US (occurrence: US)
  Receive Date: 20140625
  Receipt Date: 20140625
  Transmission Date: 20141212
  Serious: No
  Sender: FDA-Public Use
  Company Number: US-ASTELLAS-2013US012588

PATIENT
  Age: 66 Year
  Sex: Male

DRUGS (1)
  1. VESICARE [Suspect]
     Indication: HYPERTONIC BLADDER
     Dosage: 5 MG/DAY, DAILY
     Route: 048
     Dates: start: 201310

REACTIONS (2)
  - Wrong technique in drug usage process [Unknown]
  - Constipation [Recovered/Resolved]
